FAERS Safety Report 4826151-5 (Version None)
Quarter: 2005Q4

REPORT INFORMATION
  Report Type: 
  Country: None (occurrence: None)
  Receive Date: 20051111
  Receipt Date: 20051110
  Transmission Date: 20060501
  Serious: Yes (Other)
  Sender: FDA-Public Use
  Company Number: US-GLAXOSMITHKLINE-A0581772A

PATIENT
  Age: 35 Year
  Sex: Female

DRUGS (4)
  1. GOODY'S EXTRA STRENGTH HEADACHE POWDER [Suspect]
     Indication: DRUG USE FOR UNKNOWN INDICATION
     Route: 048
     Dates: start: 19870101
  2. ZELNORM [Concomitant]
     Indication: IRRITABLE BOWEL SYNDROME
     Route: 048
  3. IBUPROFEN [Concomitant]
     Dosage: 800MG FOUR TIMES PER DAY
     Route: 048
  4. HYDROCODONE + ACETAMINOPHEN [Concomitant]

REACTIONS (1)
  - DEPENDENCE [None]
